FAERS Safety Report 20725019 (Version 2)
Quarter: 2022Q2

REPORT INFORMATION
  Report Type: Other
  Country: US (occurrence: None)
  Receive Date: 20220419
  Receipt Date: 20220421
  Transmission Date: 20220720
  Serious: No
  Sender: FDA-Public Use
  Company Number: US-ROCHE-3077792

PATIENT
  Sex: Male

DRUGS (1)
  1. OCREVUS [Suspect]
     Active Substance: OCRELIZUMAB
     Indication: Relapsing-remitting multiple sclerosis
     Dosage: (PRESCRIBED AS 300 MG (2 VIALS))?DATE OF TREATMENT: 20/SEP/2019, 04/OCT/2019, 03/APR/2020.
     Route: 065

REACTIONS (2)
  - JC polyomavirus test positive [Unknown]
  - Anxiety [Unknown]
